FAERS Safety Report 6812522-4 (Version None)
Quarter: 2010Q2

REPORT INFORMATION
  Report Type: 
  Country: None (occurrence: None)
  Receive Date: 20100628
  Receipt Date: 20100614
  Transmission Date: 20101027
  Serious: Yes (Hospitalization)
  Sender: FDA-Public Use
  Company Number: 7008126

PATIENT
  Age: 47 Year
  Sex: Female

DRUGS (2)
  1. REBIF [Suspect]
     Indication: MULTIPLE SCLEROSIS
     Dosage: 44 MCG, 3 IN 1 WK, SUBCUTANEOUS
     Route: 058
     Dates: start: 20081112, end: 20100611
  2. GABAPENTIN [Concomitant]

REACTIONS (4)
  - DRUG HYPERSENSITIVITY [None]
  - INJECTION SITE INFECTION [None]
  - INJECTION SITE SCAB [None]
  - PNEUMONIA PRIMARY ATYPICAL [None]
